FAERS Safety Report 9304881 (Version 1)
Quarter: 2013Q1

REPORT INFORMATION
  Report Type: Spontaneous
  Country: FR (occurrence: None)
  Receive Date: 20130222
  Receipt Date: 20130222
  Transmission Date: 20140127
  Serious: Yes (Hospitalization)
  Sender: FDA-Public Use
  Company Number: LOC-01118

PATIENT
  Age: 92 Year
  Sex: Female

DRUGS (6)
  1. LOCOID [Suspect]
     Indication: PRODUCT USED FOR UNKNOWN INDICATION
     Route: 003
  2. ALDALIX [Suspect]
     Indication: PRODUCT USED FOR UNKNOWN INDICATION
     Route: 048
     Dates: end: 20121210
  3. AMIODARONE MERCK (AMIODARONE HYDROCHLORIDE) [Concomitant]
  4. RILMENIDINE BIOGARAN (RILMENIDINE) [Concomitant]
  5. BETAHISTINE MERCK (BETAHISTINE HYDROCHLORIDE) [Concomitant]
  6. PANTOPRAZOLE TEVA (PANTOPRAZOLE SODIUM SESQUIHYDRATE) [Concomitant]

REACTIONS (3)
  - Renal failure acute [None]
  - Hyperkalaemia [None]
  - Fall [None]
